FAERS Safety Report 25136510 (Version 1)
Quarter: 2025Q1

REPORT INFORMATION
  Report Type: Spontaneous
  Country: SK (occurrence: SK)
  Receive Date: 20250328
  Receipt Date: 20250328
  Transmission Date: 20250409
  Serious: Yes (Life-Threatening, Hospitalization, Other)
  Sender: MYLAN
  Company Number: SK-SUN PHARMACEUTICAL INDUSTRIES LTD-2025R1-498548

PATIENT
  Sex: Male

DRUGS (4)
  1. DOXORUBICIN [Suspect]
     Active Substance: DOXORUBICIN
     Indication: Lymphoma
  2. VINCRISTINE [Suspect]
     Active Substance: VINCRISTINE
     Indication: Lymphoma
  3. PREDNISONE [Suspect]
     Active Substance: PREDNISONE
     Indication: Lymphoma
  4. RITUXIMAB [Suspect]
     Active Substance: RITUXIMAB
     Indication: Lymphoma

REACTIONS (1)
  - Atrioventricular block complete [Unknown]
